FAERS Safety Report 10769897 (Version 4)
Quarter: 2015Q1

REPORT INFORMATION
  Report Type: Report from Study
  Country: DE (occurrence: DE)
  Receive Date: 20150206
  Receipt Date: 20150219
  Transmission Date: 20150721
  Serious: Yes (Hospitalization)
  Sender: FDA-Public Use
  Company Number: DE-ABBVIE-15K-062-1341640-00

PATIENT
  Age: 62 Year
  Sex: Female
  Weight: 80 kg

DRUGS (1)
  1. HUMIRA [Suspect]
     Active Substance: ADALIMUMAB
     Indication: RHEUMATOID ARTHRITIS
     Route: 058
     Dates: end: 20141021

REACTIONS (2)
  - Aortic valve stenosis [Recovered/Resolved with Sequelae]
  - Cardiac failure chronic [Recovered/Resolved with Sequelae]

NARRATIVE: CASE EVENT DATE: 20141023
